FAERS Safety Report 25087507 (Version 2)
Quarter: 2025Q2

REPORT INFORMATION
  Report Type: Report from Study
  Country: US (occurrence: US)
  Receive Date: 20250318
  Receipt Date: 20250419
  Transmission Date: 20250716
  Serious: No
  Sender: SANDOZ
  Company Number: US-SANDOZ-SDZ2025US015491

PATIENT
  Sex: Male

DRUGS (2)
  1. OMNITROPE [Suspect]
     Active Substance: SOMATROPIN
     Indication: Short stature
     Dosage: 0.16 ML, QD ( 5 MG/ML POWDER AND SOLVENT FOR SOLUTION FOR INJECTION)
     Route: 058
  2. OMNITROPE [Suspect]
     Active Substance: SOMATROPIN
     Indication: Short stature
     Dosage: 0.16 ML, QD ( 5 MG/ML POWDER AND SOLVENT FOR SOLUTION FOR INJECTION)
     Route: 058

REACTIONS (4)
  - Fatigue [Unknown]
  - Injection site pain [Unknown]
  - Inadvertent injection air bubble [Unknown]
  - Product quality issue [Unknown]
